FAERS Safety Report 4514205-2 (Version None)
Quarter: 2004Q4

REPORT INFORMATION
  Report Type: 
  Country: None (occurrence: None)
  Receive Date: 20041126
  Receipt Date: 20041115
  Transmission Date: 20050328
  Serious: Yes (Disabling, Other)
  Sender: FDA-Public Use
  Company Number: SUS1-2004-00571

PATIENT
  Age: 11 Year
  Sex: Male
  Weight: 24.5 kg

DRUGS (4)
  1. ADDERALL XR(AMPHETAMINE ASPARTATE, AMPHETAMINE SULFATE, DEXTROAMPHETAM [Suspect]
     Indication: ATTENTION DEFICIT/HYPERACTIVITY DISORDER
     Dosage: 10 + 20 MG, 5X/WEEK, UNK
     Dates: end: 20040507
  2. ADDERALL XR(AMPHETAMINE ASPARTATE, AMPHETAMINE SULFATE, DEXTROAMPHETAM [Suspect]
     Indication: ATTENTION DEFICIT/HYPERACTIVITY DISORDER
     Dosage: 10 + 20 MG, 5X/WEEK, UNK
     Dates: start: 20020101
  3. CLONIDINE (CLONIDINE) PATCH [Concomitant]
  4. TENEX [Concomitant]

REACTIONS (12)
  - CONVULSION [None]
  - DROOLING [None]
  - DRUG HYPERSENSITIVITY [None]
  - DYSKINESIA [None]
  - EDUCATIONAL PROBLEM [None]
  - HEADACHE [None]
  - INCOHERENT [None]
  - LOSS OF CONSCIOUSNESS [None]
  - SLEEP DISORDER [None]
  - TIC [None]
  - TOURETTE'S DISORDER [None]
  - WEIGHT DECREASED [None]
